FAERS Safety Report 5124507-7 (Version None)
Quarter: 2006Q4

REPORT INFORMATION
  Report Type: 
  Country: None (occurrence: None)
  Receive Date: 20060821
  Receipt Date: 20060628
  Transmission Date: 20070319
  Serious: No
  Sender: FDA-Public Use
  Company Number: TPA2006A01051

PATIENT
  Age: 45 Year
  Sex: Female
  Weight: 51.7101 kg

DRUGS (5)
  1. ROZEREM [Suspect]
     Indication: FIBROMYALGIA
     Dosage: 8 MG, QHS, PER ORAL
     Route: 048
     Dates: start: 20060627
  2. ROZEREM [Suspect]
     Indication: INSOMNIA
     Dosage: 8 MG, QHS, PER ORAL
     Route: 048
     Dates: start: 20060627
  3. KLONOPIN [Suspect]
     Indication: INSOMNIA
     Dosage: 1 MG, QHS, PER ORAL;  0.5 MG, QHS, PER ORAL
     Route: 048
     Dates: end: 20060625
  4. KLONOPIN [Suspect]
     Indication: INSOMNIA
     Dosage: 1 MG, QHS, PER ORAL;  0.5 MG, QHS, PER ORAL
     Route: 048
     Dates: start: 20060626, end: 20060626
  5. TRILEPTAL [Concomitant]

REACTIONS (7)
  - DIZZINESS [None]
  - FATIGUE [None]
  - HANGOVER [None]
  - INITIAL INSOMNIA [None]
  - MIDDLE INSOMNIA [None]
  - SOMNOLENCE [None]
  - THINKING ABNORMAL [None]
